FAERS Safety Report 23425813 (Version 1)
Quarter: 2024Q1

REPORT INFORMATION
  Report Type: Spontaneous
  Country: FR (occurrence: FR)
  Receive Date: 20240122
  Receipt Date: 20240122
  Transmission Date: 20240409
  Serious: Yes (Hospitalization, Other)
  Sender: FDA-Public Use
  Company Number: FR-AFSSAPS-LL2024000018

PATIENT
  Age: 35 Year
  Sex: Female

DRUGS (2)
  1. CLARITHROMYCIN [Suspect]
     Active Substance: CLARITHROMYCIN
     Indication: Ototoxicity
     Dosage: UNK
     Route: 048
     Dates: start: 20230809
  2. MEROPENEM [Suspect]
     Active Substance: MEROPENEM
     Indication: Ototoxicity
     Dosage: UNK
     Route: 048
     Dates: start: 20230809

REACTIONS (1)
  - Cholestasis [Not Recovered/Not Resolved]

NARRATIVE: CASE EVENT DATE: 20231012
